FAERS Safety Report 7853560-2 (Version None)
Quarter: 2011Q4

REPORT INFORMATION
  Report Type: 
  Country: None (occurrence: None)
  Receive Date: 20111026
  Receipt Date: 20111020
  Transmission Date: 20120403
  Serious: Yes (Hospitalization)
  Sender: FDA-Public Use
  Company Number: US-ABBOTT-11P-163-0866778-00

PATIENT
  Sex: Female
  Weight: 73.094 kg

DRUGS (9)
  1. LEVOTHYROXINE SODIUM [Concomitant]
     Indication: HYPOTHYROIDISM
  2. HUMIRA [Suspect]
     Indication: RHEUMATOID ARTHRITIS
     Dates: start: 20090101
  3. MECLAZINE [Concomitant]
     Indication: DIZZINESS
  4. PREMARIN [Concomitant]
     Indication: HORMONE REPLACEMENT THERAPY
  5. LORAZAPAN [Concomitant]
     Indication: ANXIETY
  6. LORTAB [Concomitant]
     Indication: PAIN
  7. POTASSIUM [Concomitant]
     Indication: MINERAL SUPPLEMENTATION
  8. ATENOLOL [Concomitant]
     Indication: HYPERTENSION
  9. METHOTREXATE [Suspect]
     Indication: RHEUMATOID ARTHRITIS

REACTIONS (7)
  - INCREASED UPPER AIRWAY SECRETION [None]
  - PARANASAL SINUS HYPERSECRETION [None]
  - DEHYDRATION [None]
  - BLOOD SODIUM DECREASED [None]
  - BLOOD MAGNESIUM DECREASED [None]
  - PNEUMONIA [None]
  - BLOOD POTASSIUM DECREASED [None]
